FAERS Safety Report 11997659 (Version 1)
Quarter: 2016Q1

REPORT INFORMATION
  Report Type: Spontaneous
  Country: US (occurrence: None)
  Receive Date: 20160202
  Receipt Date: 20160202
  Transmission Date: 20160526
  Serious: Yes (Life-Threatening, Hospitalization, Other)
  Sender: FDA-Public Use
  Company Number: None

PATIENT
  Age: 63 Year
  Sex: Male
  Weight: 86.2 kg

DRUGS (2)
  1. METHADONE [Suspect]
     Active Substance: METHADONE HYDROCHLORIDE
     Indication: PAIN
     Dosage: 10 MG OTHER  OTHER
     Route: 050
     Dates: end: 20111001
  2. CIPROFLOXACIN/DEXTROSE [Suspect]
     Active Substance: CIPROFLOXACIN HYDROCHLORIDE\DEXTROSE
     Indication: DEPRESSION
     Route: 042
     Dates: start: 20111001, end: 20111002

REACTIONS (1)
  - Torsade de pointes [None]

NARRATIVE: CASE EVENT DATE: 20111012
